FAERS Safety Report 7546835-8 (Version None)
Quarter: 2011Q2

REPORT INFORMATION
  Report Type: 
  Country: None (occurrence: None)
  Receive Date: 20110614
  Receipt Date: 20110606
  Transmission Date: 20111010
  Serious: Yes (Hospitalization)
  Sender: FDA-Public Use
  Company Number: FR-ROCHE-781499

PATIENT
  Sex: Male

DRUGS (4)
  1. PREDNISONE [Concomitant]
  2. NOVOMIX [Concomitant]
  3. CELLCEPT [Suspect]
     Route: 048
     Dates: start: 20080101
  4. PROGRAF [Suspect]
     Route: 048
     Dates: start: 20080101

REACTIONS (1)
  - OSTEITIS [None]
